FAERS Safety Report 16094658 (Version 3)
Quarter: 2019Q2

REPORT INFORMATION
  Report Type: Spontaneous
  Country: US (occurrence: US)
  Receive Date: 20190320
  Receipt Date: 20190423
  Transmission Date: 20190711
  Serious: Yes (Hospitalization)
  Sender: FDA-Public Use
  Company Number: US-ROCHE-2279296

PATIENT
  Age: 55 Year
  Sex: Female
  Weight: 66.7 kg

DRUGS (7)
  1. ALTEPLASE. [Suspect]
     Active Substance: ALTEPLASE
     Route: 042
     Dates: start: 20190228
  2. ALTEPLASE. [Suspect]
     Active Substance: ALTEPLASE
     Indication: CEREBROVASCULAR ACCIDENT
     Route: 042
     Dates: start: 20190228
  3. ATENOLOL. [Concomitant]
     Active Substance: ATENOLOL
     Dosage: ONGOING
     Route: 048
  4. LISINOPRIL. [Concomitant]
     Active Substance: LISINOPRIL
     Dosage: ONGOING
     Route: 065
  5. PROZAC [Concomitant]
     Active Substance: FLUOXETINE HYDROCHLORIDE
     Dosage: ONGOING
     Route: 048
  6. ATORVASTATIN [Concomitant]
     Active Substance: ATORVASTATIN
     Dosage: ONGOING
     Route: 048
  7. PREVACID [Concomitant]
     Active Substance: LANSOPRAZOLE
     Dosage: ONGOING
     Route: 048

REACTIONS (3)
  - Urticaria [Unknown]
  - Vomiting [Unknown]
  - Hypotension [Recovered/Resolved]

NARRATIVE: CASE EVENT DATE: 20190228
